FAERS Safety Report 23841820 (Version 5)
Quarter: 2025Q1

REPORT INFORMATION
  Report Type: Report from Study
  Country: US (occurrence: US)
  Receive Date: 20240510
  Receipt Date: 20250227
  Transmission Date: 20250409
  Serious: Yes (Death, Hospitalization, Other)
  Sender: INSMED
  Company Number: US-INSMED, INC.-2024-01802-US

PATIENT
  Age: 59 Year
  Sex: Male

DRUGS (3)
  1. ARIKAYCE [Suspect]
     Active Substance: AMIKACIN
     Indication: Product used for unknown indication
     Dosage: 590 MILLIGRAM, QD
     Route: 055
     Dates: start: 202105
  2. ARIKAYCE [Suspect]
     Active Substance: AMIKACIN
     Dosage: 590 MILLIGRAM, QD
     Route: 055
  3. ARIKAYCE [Suspect]
     Active Substance: AMIKACIN
     Dosage: 590 MILLIGRAM, QD, TOOK TWO DOSES ON SOME DAYS
     Route: 055

REACTIONS (10)
  - Death [Fatal]
  - Hospitalisation [Unknown]
  - Cardiac failure [Unknown]
  - Dependence on oxygen therapy [Unknown]
  - Respiratory failure [Unknown]
  - Dyspnoea [Unknown]
  - Therapy interrupted [Unknown]
  - Insurance issue [Unknown]
  - Off label use [Unknown]
  - Overdose [Unknown]

NARRATIVE: CASE EVENT DATE: 20250201
